FAERS Safety Report 16226652 (Version 1)
Quarter: 2019Q2

REPORT INFORMATION
  Report Type: Other
  Country: CA (occurrence: CA)
  Receive Date: 20190423
  Receipt Date: 20190423
  Transmission Date: 20190711
  Serious: Yes (Hospitalization, Other)
  Sender: FDA-Public Use
  Company Number: CA-APOTEX-2019AP012104

PATIENT
  Age: 13 Year
  Sex: Female

DRUGS (1)
  1. ACETAMINOPHEN. [Suspect]
     Active Substance: ACETAMINOPHEN
     Indication: INTENTIONAL OVERDOSE
     Dosage: UNK
     Route: 048

REACTIONS (6)
  - Metabolic encephalopathy [Unknown]
  - Toxicity to various agents [Recovered/Resolved]
  - Brain oedema [Recovered/Resolved]
  - Overdose [Unknown]
  - Hepatic failure [Recovered/Resolved]
  - Drug-induced liver injury [Unknown]
